FAERS Safety Report 19997582 (Version 1)
Quarter: 2021Q4

REPORT INFORMATION
  Report Type: Report from Study
  Country: US (occurrence: US)
  Receive Date: 20211026
  Receipt Date: 20211026
  Transmission Date: 20220303
  Serious: Yes (Other)
  Sender: FDA-Public Use
  Company Number: US-MYLANLABS-2021M1076414

PATIENT
  Age: 24 Year
  Sex: Female

DRUGS (4)
  1. CARBOPLATIN [Suspect]
     Active Substance: CARBOPLATIN
     Indication: Astrocytoma
     Dosage: 400 MILLIGRAM/SQ. METER RECEIVED 11 CYCLES
     Route: 013
  2. CARBOPLATIN [Suspect]
     Active Substance: CARBOPLATIN
     Indication: Chemotherapy
  3. MELPHALAN [Concomitant]
     Active Substance: MELPHALAN
     Indication: Astrocytoma
     Dosage: 8 MILLIGRAM/SQ. METER RECEIVED 11 CYCLES
     Route: 013
  4. MELPHALAN [Concomitant]
     Active Substance: MELPHALAN
     Indication: Chemotherapy

REACTIONS (2)
  - Cystitis haemorrhagic [Unknown]
  - Hypersensitivity [Unknown]
